FAERS Safety Report 5347320-4 (Version None)
Quarter: 2007Q2

REPORT INFORMATION
  Report Type: 
  Country: None (occurrence: None)
  Receive Date: 20070606
  Receipt Date: 20070528
  Transmission Date: 20071010
  Serious: Yes (Hospitalization)
  Sender: FDA-Public Use
  Company Number: JP-BAYER-200712983GDS

PATIENT
  Age: 71 Year
  Sex: Male

DRUGS (2)
  1. ADALAT [Suspect]
     Indication: APLASTIC ANAEMIA
     Route: 065
  2. CYCLOSPORINE [Concomitant]
     Indication: APLASTIC ANAEMIA
     Route: 065

REACTIONS (1)
  - EXCESSIVE GRANULATION TISSUE [None]
